FAERS Safety Report 12967764 (Version 1)
Quarter: 2016Q4

REPORT INFORMATION
  Report Type: Spontaneous
  Country: US (occurrence: US)
  Receive Date: 20161123
  Receipt Date: 20161123
  Transmission Date: 20170207
  Serious: No
  Sender: FDA-Public Use
  Company Number: US-PFIZER INC-2016536083

PATIENT
  Age: 79 Year
  Sex: Female
  Weight: 61.23 kg

DRUGS (1)
  1. IBRANCE [Suspect]
     Active Substance: PALBOCICLIB
     Indication: BREAST CANCER METASTATIC
     Dosage: 125 MG, CYCLIC (DAYS 1-21 Q28 DAYS)
     Route: 048
     Dates: start: 20161103

REACTIONS (7)
  - Somnolence [Unknown]
  - Neoplasm progression [Unknown]
  - Gait disturbance [Unknown]
  - Hypersomnia [Unknown]
  - White blood cell count decreased [Unknown]
  - Diarrhoea [Unknown]
  - Pain in extremity [Unknown]
